FAERS Safety Report 8712053 (Version 2)
Quarter: 2014Q4

REPORT INFORMATION
  Report Type: Spontaneous
  Country: ES (occurrence: ES)
  Receive Date: 20120807
  Receipt Date: 20141010
  Transmission Date: 20150529
  Serious: Yes (Hospitalization)
  Sender: FDA-Public Use
  Company Number: PHHY2012ES066441

PATIENT
  Age: 47 Year
  Sex: Female

DRUGS (3)
  1. OMEPRAZOLE. [Concomitant]
     Active Substance: OMEPRAZOLE
     Indication: HELICOBACTER INFECTION
     Dosage: 40 MG, UNK
  2. CLARITHROMYCIN. [Suspect]
     Active Substance: CLARITHROMYCIN
     Indication: HELICOBACTER INFECTION
     Dosage: 500 MG, BID
  3. AMOXICILLIN. [Concomitant]
     Active Substance: AMOXICILLIN
     Indication: HELICOBACTER INFECTION
     Dosage: 1 G, UNK

REACTIONS (13)
  - Psychomotor hyperactivity [Recovering/Resolving]
  - Mania [Recovering/Resolving]
  - Emotional disorder [Recovering/Resolving]
  - Energy increased [Unknown]
  - Psychotic disorder [Recovering/Resolving]
  - Insomnia [Recovering/Resolving]
  - Delusion of grandeur [Recovering/Resolving]
  - Bipolar I disorder [Unknown]
  - Irritability [Recovering/Resolving]
  - Thinking abnormal [Recovering/Resolving]
  - Pressure of speech [Recovering/Resolving]
  - Abnormal behaviour [Recovering/Resolving]
  - Tachyphrenia [Recovering/Resolving]
